FAERS Safety Report 15134069 (Version 1)
Quarter: 2018Q3

REPORT INFORMATION
  Report Type: Spontaneous
  Country: IT (occurrence: IT)
  Receive Date: 20180712
  Receipt Date: 20180712
  Transmission Date: 20181010
  Serious: Yes (Hospitalization)
  Sender: FDA-Public Use
  Company Number: PHHY2017IT204227

PATIENT
  Age: 54 Year
  Sex: Female

DRUGS (3)
  1. PERTUZUMAB. [Suspect]
     Active Substance: PERTUZUMAB
     Indication: BREAST CANCER
     Dosage: 840 MG LOADING DOSE ON DAY ONE, FOLLOWED BY 420 MG EVERY 3 WEEKS FOR 5 CYCLES
     Route: 042
     Dates: start: 20170822, end: 20171116
  2. PACLITAXEL. [Suspect]
     Active Substance: PACLITAXEL
     Indication: BREAST CANCER
     Dosage: 80 MG/KG, UNK (THERAPY DURATION 13 WEEKS)
     Route: 042
     Dates: start: 20170823, end: 20171130
  3. TRASTUZUMAB. [Suspect]
     Active Substance: TRASTUZUMAB
     Indication: BREAST CANCER
     Dosage: 8 MG/KG LOADING DOSE ON DAY 2, FOLLOWED BY 6 MG/KG ON DAY 2 OF EACH SUBSEQUENT 3 WEEKLY CYCLE
     Route: 065
     Dates: start: 20170823, end: 20171116

REACTIONS (1)
  - Abdominal pain [Unknown]

NARRATIVE: CASE EVENT DATE: 20171222
